FAERS Safety Report 17898242 (Version 1)
Quarter: 2020Q2

REPORT INFORMATION
  Report Type: Spontaneous
  Country: US (occurrence: US)
  Receive Date: 20200615
  Receipt Date: 20200615
  Transmission Date: 20200714
  Serious: No
  Sender: FDA-Public Use
  Company Number: US-PERRIGO-20US007010

PATIENT
  Age: 19 Year
  Sex: Male
  Weight: 81.63 kg

DRUGS (2)
  1. ALBUTEROL SULFATE. [Suspect]
     Active Substance: ALBUTEROL SULFATE
     Dosage: PARTIAL DOSE, 1-2 TIMES DAILY, PRN
     Route: 055
     Dates: start: 202005
  2. ALBUTEROL SULFATE. [Suspect]
     Active Substance: ALBUTEROL SULFATE
     Indication: ASTHMA
     Dosage: 180 MCG, 1-2 TIMES DAILY, PRN
     Route: 055
     Dates: start: 202003, end: 202005

REACTIONS (2)
  - Device delivery system issue [Not Recovered/Not Resolved]
  - Underdose [Not Recovered/Not Resolved]

NARRATIVE: CASE EVENT DATE: 202005
